FAERS Safety Report 9308949 (Version 1)
Quarter: 2013Q2

REPORT INFORMATION
  Report Type: Spontaneous
  Country: JP (occurrence: JP)
  Receive Date: 20130524
  Receipt Date: 20130524
  Transmission Date: 20140414
  Serious: Yes (Other)
  Sender: FDA-Public Use
  Company Number: JP-ASTRAZENECA-2013SE35705

PATIENT
  Age: 69 Year
  Sex: Male
  Weight: 48 kg

DRUGS (8)
  1. DIPRIVAN [Suspect]
     Indication: SEDATION
     Dosage: 2 MG/KG/HR
     Route: 042
  2. DIPRIVAN [Interacting]
     Indication: SEDATION
     Dosage: 2 MG/KG/HR
     Route: 042
  3. DEXMEDETOMIDINE HYDROCHLORIDE [Interacting]
     Indication: SEDATION
     Dosage: 0.2 - 0.7 MCG/KG/HR
     Route: 065
  4. DEXMEDETOMIDINE HYDROCHLORIDE [Interacting]
     Indication: SEDATION
     Dosage: DOSE UNKNOWN
     Route: 065
  5. FENTANYL [Concomitant]
     Indication: SEDATION
     Dosage: 20 MCG/HR
     Route: 065
  6. FUROSEMIDE [Concomitant]
     Route: 065
  7. DOPAMINE [Concomitant]
     Route: 065
  8. DOBUTAMINE [Concomitant]
     Route: 065

REACTIONS (2)
  - Drug interaction [Unknown]
  - Pyrexia [Recovering/Resolving]
